FAERS Safety Report 18546558 (Version 1)
Quarter: 2020Q4

REPORT INFORMATION
  Report Type: Spontaneous
  Country: NL (occurrence: DE)
  Receive Date: 20201125
  Receipt Date: 20201125
  Transmission Date: 20210114
  Serious: Yes (Disabling)
  Sender: FDA-Public Use
  Company Number: DE-FRESENIUS KABI-FK202012349

PATIENT
  Age: 60 Year
  Sex: Female
  Weight: 60 kg

DRUGS (3)
  1. DENOSUMAB [Concomitant]
     Active Substance: DENOSUMAB
     Indication: BREAST CANCER METASTATIC
     Route: 058
  2. PACLITAXEL (MANUFACTURER UNKNOWN) [Suspect]
     Active Substance: PACLITAXEL
     Indication: BREAST CANCER METASTATIC
     Dosage: PHARMACEUTICAL DOSE FORM (FREE TEXT): UNKNOWN?PARENT ROUTE OF ADMINISTRATION (FREE TEXT): UNKNOWN
     Route: 042
     Dates: start: 20200409, end: 20200721
  3. BEVACIZUMAB. [Suspect]
     Active Substance: BEVACIZUMAB
     Indication: BREAST CANCER METASTATIC
     Dosage: PHARMACEUTICAL DOSE FORM (FREE TEXT): INFUSION, SOLUTION?PARENT ROUTE OF ADMINISTRATION (FREE TEXT):
     Route: 042
     Dates: start: 20200409, end: 20200528

REACTIONS (1)
  - Tympanic membrane perforation [Not Recovered/Not Resolved]

NARRATIVE: CASE EVENT DATE: 20200608
